FAERS Safety Report 24163875 (Version 1)
Quarter: 2024Q3

REPORT INFORMATION
  Report Type: Spontaneous
  Country: FR (occurrence: FR)
  Receive Date: 20240801
  Receipt Date: 20240801
  Transmission Date: 20241017
  Serious: Yes (Life-Threatening, Other)
  Sender: SANOFI AVENTIS
  Company Number: FR-AFSSAPS-AVMA2024000328

PATIENT
  Age: 63 Year
  Sex: Male

DRUGS (7)
  1. ZOLPIDEM TARTRATE [Suspect]
     Active Substance: ZOLPIDEM TARTRATE
  2. OXAZEPAM [Suspect]
     Active Substance: OXAZEPAM
  3. ACETAMINOPHEN\OPIUM [Suspect]
     Active Substance: ACETAMINOPHEN\OPIUM
  4. CANNABIS SATIVA SUBSP. INDICA TOP [Suspect]
     Active Substance: CANNABIS SATIVA SUBSP. INDICA TOP
  5. NEURONTIN [Suspect]
     Active Substance: GABAPENTIN
  6. MORPHINE SULFATE [Suspect]
     Active Substance: MORPHINE SULFATE
  7. FENTANYL [Suspect]
     Active Substance: FENTANYL\FENTANYL CITRATE

REACTIONS (8)
  - Miosis [Recovered/Resolved]
  - Drug use disorder [Unknown]
  - Acute kidney injury [Unknown]
  - Respiratory distress [Recovered/Resolved]
  - Coma [Recovered/Resolved]
  - Generalised tonic-clonic seizure [Recovered/Resolved]
  - Pneumonia aspiration [Unknown]
  - Substance use disorder [Unknown]

NARRATIVE: CASE EVENT DATE: 20240129
